FAERS Safety Report 12868010 (Version 2)
Quarter: 2016Q4

REPORT INFORMATION
  Report Type: Spontaneous
  Country: TR (occurrence: TR)
  Receive Date: 20161020
  Receipt Date: 20161025
  Transmission Date: 20170207
  Serious: Yes (Hospitalization)
  Sender: FDA-Public Use
  Company Number: TR-GILEAD-2016-0238386

PATIENT
  Age: 65 Year
  Sex: Female

DRUGS (10)
  1. IRBESARTAN HYDROCHLOROTHIAZIDE [Concomitant]
     Active Substance: HYDROCHLOROTHIAZIDE\IRBESARTAN
  2. VIRON                              /00816701/ [Concomitant]
  3. AMLODIPINE [Concomitant]
     Active Substance: AMLODIPINE BESYLATE
  4. INSULIN LISPRO [Concomitant]
     Active Substance: INSULIN LISPRO
  5. INSULIN LISPRO PROTAMINE RECOMBINANT [Concomitant]
     Active Substance: INSULIN LISPRO
  6. QUETIAPIN [Concomitant]
     Active Substance: QUETIAPINE
  7. AURORIX [Concomitant]
     Active Substance: MOCLOBEMIDE
  8. METOPROLOL. [Concomitant]
     Active Substance: METOPROLOL
  9. HARVONI [Suspect]
     Active Substance: LEDIPASVIR\SOFOSBUVIR
     Indication: PRODUCT USED FOR UNKNOWN INDICATION
     Dosage: UNK
     Route: 065
  10. LEVOTHYROXINE. [Concomitant]
     Active Substance: LEVOTHYROXINE

REACTIONS (2)
  - Blood creatinine increased [Recovered/Resolved]
  - Blood bilirubin increased [Recovered/Resolved]
